FAERS Safety Report 8870193 (Version 1)
Quarter: 2012Q4

REPORT INFORMATION
  Report Type: Spontaneous
  Country: US (occurrence: None)
  Receive Date: 20121025
  Receipt Date: 20121025
  Transmission Date: 20130627
  Serious: Yes (Other)
  Sender: FDA-Public Use
  Company Number: None

PATIENT
  Age: 19 Year
  Sex: Male
  Weight: 58.97 kg

DRUGS (1)
  1. AMNESTEEM [Suspect]
     Route: 048
     Dates: start: 20101001, end: 20110301

REACTIONS (12)
  - Proctitis [None]
  - No therapeutic response [None]
  - Colitis [None]
  - Weight decreased [None]
  - Decreased appetite [None]
  - Abdominal pain [None]
  - Diarrhoea [None]
  - Faecal incontinence [None]
  - Nausea [None]
  - Depression [None]
  - Quality of life decreased [None]
  - Colitis ulcerative [None]
